FAERS Safety Report 11705582 (Version 1)
Quarter: 2015Q4

REPORT INFORMATION
  Report Type: Spontaneous
  Country: US (occurrence: US)
  Receive Date: 20151106
  Receipt Date: 20151106
  Transmission Date: 20160304
  Serious: Yes (Other)
  Sender: FDA-Public Use
  Company Number: US-BAYER-2015-454489

PATIENT
  Age: 65 Year
  Sex: Male
  Weight: 64.85 kg

DRUGS (11)
  1. OXYCODONE [Concomitant]
     Active Substance: OXYCODONE
  2. IBUPROFEN. [Concomitant]
     Active Substance: IBUPROFEN
  3. LYRICA [Concomitant]
     Active Substance: PREGABALIN
     Indication: NEURALGIA
     Dosage: 75 MG, TID
     Route: 048
     Dates: start: 20150811
  4. DIAZEPAM. [Concomitant]
     Active Substance: DIAZEPAM
  5. BAYER GENUINE ASPIRIN [Suspect]
     Active Substance: ASPIRIN
  6. LYRICA [Concomitant]
     Active Substance: PREGABALIN
     Indication: NEURALGIA
     Dosage: 75 MG, BID
     Route: 048
     Dates: start: 2015
  7. TRAZODONE [Concomitant]
     Active Substance: TRAZODONE HYDROCHLORIDE
     Dosage: UNK
     Dates: start: 20151009
  8. TYLENOL EXTRA STRENGTH [Concomitant]
     Active Substance: ACETAMINOPHEN
  9. GABAPENTIN. [Concomitant]
     Active Substance: GABAPENTIN
  10. METHADONE [Concomitant]
     Active Substance: METHADONE HYDROCHLORIDE
  11. SENNA-S [Concomitant]
     Active Substance: DOCUSATE SODIUM\SENNOSIDES

REACTIONS (16)
  - Fall [None]
  - Feeding disorder [None]
  - Headache [Recovered/Resolved]
  - Weight decreased [Recovered/Resolved]
  - Constipation [Recovered/Resolved]
  - Blood pressure increased [None]
  - Nausea [Recovered/Resolved]
  - Impaired driving ability [Not Recovered/Not Resolved]
  - Eye injury [None]
  - Angina pectoris [None]
  - Drug ineffective [None]
  - Abasia [None]
  - Weight increased [Not Recovered/Not Resolved]
  - Dizziness [Recovered/Resolved]
  - Insomnia [Not Recovered/Not Resolved]
  - Vomiting [Recovered/Resolved]

NARRATIVE: CASE EVENT DATE: 201509
